FAERS Safety Report 25219083 (Version 1)
Quarter: 2025Q2

REPORT INFORMATION
  Report Type: Spontaneous
  Country: US (occurrence: US)
  Receive Date: 20250421
  Receipt Date: 20250421
  Transmission Date: 20250716
  Serious: Yes (Death, Hospitalization, Other)
  Sender: BIOVITRUM
  Company Number: US-BIOVITRUM-2025-US-005276

PATIENT
  Age: 37 Year
  Sex: Female

DRUGS (2)
  1. EMAPALUMAB [Suspect]
     Active Substance: EMAPALUMAB
     Indication: Haemophagocytic lymphohistiocytosis
  2. EMAPALUMAB [Suspect]
     Active Substance: EMAPALUMAB
     Indication: Epstein-Barr virus infection

REACTIONS (9)
  - Lactic acidosis [Fatal]
  - Liver function test increased [Fatal]
  - Blood bilirubin increased [Fatal]
  - Lymphocyte count increased [Fatal]
  - Epstein-Barr virus infection reactivation [Fatal]
  - Off label use [Unknown]
  - Anuria [Fatal]
  - Lymphoproliferative disorder [Fatal]
  - Tachypnoea [Fatal]
